FAERS Safety Report 10446609 (Version 1)
Quarter: 2014Q3

REPORT INFORMATION
  Report Type: Spontaneous
  Country: US (occurrence: None)
  Receive Date: 20140910
  Receipt Date: 20140910
  Transmission Date: 20150326
  Serious: No
  Sender: FDA-Public Use
  Company Number: None

PATIENT
  Age: 29 Year
  Sex: Female
  Weight: 108.86 kg

DRUGS (1)
  1. PENICILLIN VK [Suspect]
     Active Substance: PENICILLIN V POTASSIUM
     Indication: TOOTH INFECTION
     Route: 048
     Dates: start: 20140908, end: 20140909

REACTIONS (2)
  - Somnolence [None]
  - Feeling abnormal [None]

NARRATIVE: CASE EVENT DATE: 20140908
